FAERS Safety Report 16862241 (Version 4)
Quarter: 2023Q4

REPORT INFORMATION
  Report Type: Spontaneous
  Country: US (occurrence: US)
  Receive Date: 20190927
  Receipt Date: 20231127
  Transmission Date: 20240110
  Serious: Yes (Hospitalization, Other)
  Sender: FDA-Public Use
  Company Number: US-GILEAD-2019-0429714

PATIENT
  Age: 39 Year
  Sex: Male
  Weight: 71.202 kg

DRUGS (38)
  1. TRUVADA [Suspect]
     Active Substance: EMTRICITABINE\TENOFOVIR DISOPROXIL FUMARATE
     Indication: HIV infection
     Dosage: UNK
     Route: 048
     Dates: start: 2011, end: 2018
  2. TRUVADA [Suspect]
     Active Substance: EMTRICITABINE\TENOFOVIR DISOPROXIL FUMARATE
     Dosage: UNK
     Route: 048
     Dates: start: 2007, end: 2012
  3. TRUVADA [Suspect]
     Active Substance: EMTRICITABINE\TENOFOVIR DISOPROXIL FUMARATE
     Dosage: UNK
     Route: 048
     Dates: start: 200712, end: 2012
  4. VIREAD [Suspect]
     Active Substance: TENOFOVIR DISOPROXIL FUMARATE
     Indication: HIV infection
     Dosage: UNK
     Route: 048
     Dates: start: 20180821
  5. EMTRIVA [Concomitant]
     Active Substance: EMTRICITABINE
  6. CINACALCET [Concomitant]
     Active Substance: CINACALCET
     Dosage: UNK
     Dates: start: 20160616
  7. PREDNISONE [Concomitant]
     Active Substance: PREDNISONE
     Dosage: UNK
     Dates: start: 20130321
  8. RENVELA [Concomitant]
     Active Substance: SEVELAMER CARBONATE
     Dosage: UNK
     Dates: start: 20150410
  9. IRON [Concomitant]
     Active Substance: IRON
     Dosage: UNK
     Dates: start: 20170406
  10. COMBIVIR [Concomitant]
     Active Substance: LAMIVUDINE\ZIDOVUDINE
  11. EDURANT [Concomitant]
     Active Substance: RILPIVIRINE HYDROCHLORIDE
  12. EPIVIR [Concomitant]
     Active Substance: LAMIVUDINE
  13. EPZICOM [Concomitant]
     Active Substance: ABACAVIR SULFATE\LAMIVUDINE
  14. INTELENCE [Concomitant]
     Active Substance: ETRAVIRINE
  15. JULUCA [Concomitant]
     Active Substance: DOLUTEGRAVIR SODIUM\RILPIVIRINE HYDROCHLORIDE
  16. LEXIVA [Concomitant]
     Active Substance: FOSAMPRENAVIR CALCIUM
  17. NORVIR [Concomitant]
     Active Substance: RITONAVIR
  18. PREZISTA [Concomitant]
     Active Substance: DARUNAVIR ETHANOLATE
  19. SUSTIVA [Concomitant]
     Active Substance: EFAVIRENZ
  20. TIVICAY [Concomitant]
     Active Substance: DOLUTEGRAVIR SODIUM
  21. ZIAGEN [Concomitant]
     Active Substance: ABACAVIR SULFATE
  22. GENTAMICIN [Concomitant]
     Active Substance: GENTAMICIN
  23. DILTIAZEM [Concomitant]
     Active Substance: DILTIAZEM
  24. ABACAVIR [Concomitant]
     Active Substance: ABACAVIR
  25. ACETAMINOPHEN\CODEINE PHOSPHATE [Concomitant]
     Active Substance: ACETAMINOPHEN\CODEINE PHOSPHATE
  26. ALLOPURINOL [Concomitant]
     Active Substance: ALLOPURINOL
  27. AMLODIPINE BESYLATE [Concomitant]
     Active Substance: AMLODIPINE BESYLATE
  28. AMOXICILLIN [Concomitant]
     Active Substance: AMOXICILLIN
  29. ASPIRIN [Concomitant]
     Active Substance: ASPIRIN
  30. ATORVASTATIN [Concomitant]
     Active Substance: ATORVASTATIN
  31. BRILINTA [Concomitant]
     Active Substance: TICAGRELOR
  32. CALCITRIOL [Concomitant]
     Active Substance: CALCITRIOL
  33. CALCIUM ACETATE [Concomitant]
     Active Substance: CALCIUM ACETATE
  34. CARISOPRODOL [Concomitant]
     Active Substance: CARISOPRODOL
  35. CARVEDILOL [Concomitant]
     Active Substance: CARVEDILOL
  36. CEFDINIR [Concomitant]
     Active Substance: CEFDINIR
  37. AZITHROMYCIN [Concomitant]
     Active Substance: AZITHROMYCIN
  38. DRONABINOL [Concomitant]
     Active Substance: DRONABINOL

REACTIONS (20)
  - End stage renal disease [Not Recovered/Not Resolved]
  - Myocardial infarction [Unknown]
  - Renal failure [Unknown]
  - Chronic kidney disease-mineral and bone disorder [Not Recovered/Not Resolved]
  - Chronic kidney disease [Not Recovered/Not Resolved]
  - Nephrolithiasis [Unknown]
  - Anaemia [Not Recovered/Not Resolved]
  - Osteopenia [Not Recovered/Not Resolved]
  - Loss of personal independence in daily activities [Not Recovered/Not Resolved]
  - Quality of life decreased [Not Recovered/Not Resolved]
  - Anhedonia [Not Recovered/Not Resolved]
  - Fatigue [Not Recovered/Not Resolved]
  - Mobility decreased [Not Recovered/Not Resolved]
  - Impaired work ability [Not Recovered/Not Resolved]
  - Economic problem [Not Recovered/Not Resolved]
  - Pain [Not Recovered/Not Resolved]
  - Emotional distress [Not Recovered/Not Resolved]
  - Anxiety [Not Recovered/Not Resolved]
  - Fear-related avoidance of activities [Not Recovered/Not Resolved]
  - Renal cyst [Unknown]

NARRATIVE: CASE EVENT DATE: 20120801
